FAERS Safety Report 6206934-X (Version None)
Quarter: 2009Q2

REPORT INFORMATION
  Report Type: 
  Country: None (occurrence: None)
  Receive Date: 20090528
  Receipt Date: 20090519
  Transmission Date: 20091009
  Serious: Yes (Other)
  Sender: FDA-Public Use
  Company Number: A0786490A

PATIENT
  Sex: Female
  Weight: 51 kg

DRUGS (2)
  1. SERETIDE [Suspect]
     Indication: ALLERGIC BRONCHITIS
     Route: 055
     Dates: start: 20081201, end: 20090402
  2. COMBIVENT [Concomitant]
     Dates: start: 20050101

REACTIONS (4)
  - HERPES ZOSTER [None]
  - IMMUNODEFICIENCY [None]
  - LARYNGEAL OEDEMA [None]
  - OROPHARYNGEAL PAIN [None]
